FAERS Safety Report 21826896 (Version 2)
Quarter: 2023Q1

REPORT INFORMATION
  Report Type: Report from Study
  Country: MX (occurrence: MX)
  Receive Date: 20230106
  Receipt Date: 20230118
  Transmission Date: 20230417
  Serious: Yes (Hospitalization, Other)
  Sender: FDA-Public Use
  Company Number: MX-002147023-NVSC2023MX001663

PATIENT
  Age: 46 Year
  Sex: Female
  Weight: 60 kg

DRUGS (2)
  1. MYFORTIC [Suspect]
     Active Substance: MYCOPHENOLATE SODIUM
     Indication: Lupus nephritis
     Dosage: 1 DOSAGE FORM, Q12H (360 MG)
     Route: 048
     Dates: start: 201003
  2. MYFORTIC [Suspect]
     Active Substance: MYCOPHENOLATE SODIUM
     Dosage: 1 DOSAGE FORM, Q12H (360 MG)
     Route: 048

REACTIONS (5)
  - COVID-19 [Recovered/Resolved with Sequelae]
  - Intra-abdominal haemorrhage [Recovered/Resolved]
  - Pulmonary hypertension [Not Recovered/Not Resolved]
  - Incorrect dose administered [Unknown]
  - Product use in unapproved indication [Unknown]

NARRATIVE: CASE EVENT DATE: 20210728
